FAERS Safety Report 24641457 (Version 1)
Quarter: 2024Q4

REPORT INFORMATION
  Report Type: Spontaneous
  Country: US (occurrence: US)
  Receive Date: 20241120
  Receipt Date: 20241120
  Transmission Date: 20250115
  Serious: Yes (Death)
  Sender: AMGEN
  Company Number: US-AMGEN-USASP2024228448

PATIENT
  Age: 76 Year
  Sex: Male

DRUGS (14)
  1. OTEZLA [Suspect]
     Active Substance: APREMILAST
     Indication: Psoriasis
     Dosage: 30 MILLIGRAM, BID
     Route: 048
     Dates: start: 2022
  2. CALCIUM [Concomitant]
     Active Substance: CALCIUM
     Dosage: 600 MILLIGRAM (W/D TABLETS G/S)
  3. CLARITIN [Concomitant]
     Active Substance: LORATADINE
     Dosage: 10 MILLIGRAM
  4. VITAMIN C [Concomitant]
     Active Substance: ASCORBIC ACID
     Dosage: 1000 MILLIGRAM
  5. CREON [Concomitant]
     Active Substance: PANCRELIPASE AMYLASE\PANCRELIPASE LIPASE\PANCRELIPASE PROTEASE
     Dosage: UNK
  6. Ketodac [Concomitant]
     Dosage: UNK
  7. TIMOLOL [Concomitant]
     Active Substance: TIMOLOL\TIMOLOL MALEATE
     Dosage: UNK
  8. LOVASTATIN [Concomitant]
     Active Substance: LOVASTATIN
     Dosage: UNK
  9. METOPROLOL SUCCINATE [Concomitant]
     Active Substance: METOPROLOL SUCCINATE
     Dosage: UNK
  10. MEGACE [Concomitant]
     Active Substance: MEGESTROL ACETATE
     Dosage: UNK
  11. LISINOPRIL [Concomitant]
     Active Substance: LISINOPRIL
     Dosage: UNK
  12. HYDRALAZINE [Concomitant]
     Active Substance: HYDRALAZINE HYDROCHLORIDE
     Dosage: UNK
  13. METFORMIN [Concomitant]
     Active Substance: METFORMIN HYDROCHLORIDE
     Dosage: UNK
  14. AMLODIPINE [Concomitant]
     Active Substance: AMLODIPINE BESYLATE
     Dosage: UNK

REACTIONS (1)
  - Death [Fatal]

NARRATIVE: CASE EVENT DATE: 20241031
